FAERS Safety Report 5215486-2 (Version None)
Quarter: 2007Q1

REPORT INFORMATION
  Report Type: 
  Country: None (occurrence: None)
  Receive Date: 20070123
  Receipt Date: 20070112
  Transmission Date: 20070707
  Serious: Yes (Death, Hospitalization)
  Sender: FDA-Public Use
  Company Number: US-JNJFOC-20070103408

PATIENT
  Age: 71 Year
  Sex: Male

DRUGS (3)
  1. FENTANYL TRANSDERMAL SYSTEM [Suspect]
     Indication: INTENTIONAL DRUG MISUSE
     Route: 065
  2. BENZO [Suspect]
     Indication: INTENTIONAL DRUG MISUSE
     Route: 065
  3. HYDROCODONE BITARTRATE + ACETAMINOPHEN [Suspect]
     Indication: INTENTIONAL DRUG MISUSE
     Route: 065

REACTIONS (6)
  - CONFUSIONAL STATE [None]
  - DEATH [None]
  - DYSARTHRIA [None]
  - LETHARGY [None]
  - MIOSIS [None]
  - OVERDOSE [None]
